FAERS Safety Report 10011993 (Version 3)
Quarter: 2014Q2

REPORT INFORMATION
  Report Type: Spontaneous
  Country: US (occurrence: US)
  Receive Date: 20140314
  Receipt Date: 20140610
  Transmission Date: 20141212
  Serious: Yes (Other)
  Sender: FDA-Public Use
  Company Number: US-PFIZER INC-2014068406

PATIENT
  Age: 76 Year
  Sex: Female

DRUGS (3)
  1. LIPITOR [Suspect]
     Indication: LOW DENSITY LIPOPROTEIN INCREASED
     Dosage: 1 DF (ONE TABLET), DAILY
     Route: 048
     Dates: start: 200607
  2. LIPITOR [Suspect]
     Indication: CARDIOVASCULAR EVENT PROPHYLAXIS
     Dosage: 1 DF (ONE TABLET), DAILY
     Route: 048
     Dates: start: 200808, end: 200901
  3. SIMVASTATIN [Concomitant]
     Indication: BLOOD CHOLESTEROL INCREASED
     Dosage: UNK
     Dates: start: 200802, end: 201110

REACTIONS (1)
  - Type 2 diabetes mellitus [Not Recovered/Not Resolved]
